FAERS Safety Report 19740716 (Version 2)
Quarter: 2021Q3

REPORT INFORMATION
  Report Type: Spontaneous
  Country: US (occurrence: US)
  Receive Date: 20210824
  Receipt Date: 20210922
  Transmission Date: 20211014
  Serious: Yes (Other)
  Sender: FDA-Public Use
  Company Number: US-ALLERGAN-2128134US

PATIENT
  Sex: Female

DRUGS (1)
  1. RESTASIS [Suspect]
     Active Substance: CYCLOSPORINE
     Indication: DRY EYE
     Dosage: UNK, BID
     Route: 047

REACTIONS (9)
  - Product dispensing error [Unknown]
  - Cataract [Recovered/Resolved]
  - Stomatitis [Recovered/Resolved]
  - Nervous system disorder [Recovered/Resolved]
  - Dry mouth [Not Recovered/Not Resolved]
  - General physical condition abnormal [Not Recovered/Not Resolved]
  - Herpes simplex [Not Recovered/Not Resolved]
  - Nasal dryness [Not Recovered/Not Resolved]
  - Multiple use of single-use product [Unknown]
